FAERS Safety Report 22121060 (Version 1)
Quarter: 2023Q1

REPORT INFORMATION
  Report Type: Spontaneous
  Country: TH (occurrence: TH)
  Receive Date: 20230321
  Receipt Date: 20230321
  Transmission Date: 20230418
  Serious: Yes (Other)
  Sender: FDA-Public Use
  Company Number: TH-PFIZER INC-PV202200129257

PATIENT
  Age: 56 Year
  Sex: Male

DRUGS (2)
  1. INLYTA [Suspect]
     Active Substance: AXITINIB
     Indication: Renal cell carcinoma
     Dosage: 5 MG TWICE DAILY
     Route: 048
     Dates: start: 20220801
  2. INLYTA [Suspect]
     Active Substance: AXITINIB
     Dosage: 5 MG TWICE DAILY
     Route: 048
     Dates: start: 20230103, end: 202302

REACTIONS (4)
  - Pulmonary oedema [Unknown]
  - Protein urine present [Unknown]
  - Blood pressure increased [Unknown]
  - Neoplasm progression [Unknown]

NARRATIVE: CASE EVENT DATE: 20220101
